FAERS Safety Report 12080105 (Version 3)
Quarter: 2016Q1

REPORT INFORMATION
  Report Type: Spontaneous
  Country: FR (occurrence: FR)
  Receive Date: 20160216
  Receipt Date: 20160308
  Transmission Date: 20160526
  Serious: Yes (Hospitalization, Other)
  Sender: FDA-Public Use
  Company Number: FR-HERITAGE PHARMACEUTICALS-2016HTG00030

PATIENT
  Age: 22 Year
  Sex: Male

DRUGS (6)
  1. HYDROXYZINE HYDROCHLORIDE. [Suspect]
     Active Substance: HYDROXYZINE HYDROCHLORIDE
     Dosage: 1 TABLETS, 1X/DAY IN THE EVENING
  2. DIAZEPAM. [Suspect]
     Active Substance: DIAZEPAM
  3. PAROXETINE [Concomitant]
     Active Substance: PAROXETINE\PAROXETINE HYDROCHLORIDE
     Dosage: 20 MG, 1X/DAY IN THE MORNING
  4. MARIJUANA [Suspect]
     Active Substance: CANNABIS SATIVA SUBSP. INDICA TOP
  5. ARIPIPRAZOLE. [Concomitant]
     Active Substance: ARIPIPRAZOLE
     Dosage: 15 MG, 1X/DAY IN THE MORNING
  6. OXAZEPAM. [Concomitant]
     Active Substance: OXAZEPAM
     Dosage: 10 MG, AS NEEDED

REACTIONS (9)
  - Toxicity to various agents [Recovered/Resolved with Sequelae]
  - Suicide attempt [Recovered/Resolved with Sequelae]
  - Anterograde amnesia [Recovering/Resolving]
  - Locked-in syndrome [Recovering/Resolving]
  - Aphasia [Recovering/Resolving]
  - Hypoxic-ischaemic encephalopathy [Recovered/Resolved with Sequelae]
  - Overdose [Recovered/Resolved with Sequelae]
  - Apathy [Recovering/Resolving]
  - Central nervous system lesion [Recovered/Resolved with Sequelae]
